FAERS Safety Report 21968022 (Version 1)
Quarter: 2023Q1

REPORT INFORMATION
  Report Type: Spontaneous
  Country: US (occurrence: US)
  Receive Date: 20230208
  Receipt Date: 20230208
  Transmission Date: 20230417
  Serious: Yes (Death, Other)
  Sender: FDA-Public Use
  Company Number: US-BRISTOL-MYERS SQUIBB COMPANY-2023-018521

PATIENT
  Age: 50 Year
  Sex: Male

DRUGS (3)
  1. OPDIVO [Suspect]
     Active Substance: NIVOLUMAB
     Indication: Metastatic malignant melanoma
     Dosage: STRENGTH: OPDIVO 2 100MG VIALS
     Route: 041
  2. YERVOY [Suspect]
     Active Substance: IPILIMUMAB
     Indication: Metastatic malignant melanoma
     Dosage: STRENGTH: YERVOY 2, 200MG VIALS
     Route: 041
  3. YERVOY [Suspect]
     Active Substance: IPILIMUMAB
     Dosage: STRENGTH: YERVOY 4, 50MG VIALS
     Route: 041

REACTIONS (1)
  - Death [Fatal]

NARRATIVE: CASE EVENT DATE: 20220922
